FAERS Safety Report 13476496 (Version 1)
Quarter: 2017Q2

REPORT INFORMATION
  Report Type: Spontaneous
  Country: US (occurrence: US)
  Receive Date: 20170425
  Receipt Date: 20170425
  Transmission Date: 20170830
  Serious: No
  Sender: FDA-Public Use
  Company Number: US-BAYER-2017-078325

PATIENT
  Age: 54 Year
  Sex: Female
  Weight: 63.99 kg

DRUGS (1)
  1. MIRALAX [Suspect]
     Active Substance: POLYETHYLENE GLYCOL 3350
     Indication: DIAGNOSTIC PROCEDURE
     Dosage: UNK
     Route: 048

REACTIONS (1)
  - Off label use [None]
